FAERS Safety Report 10494854 (Version 1)
Quarter: 2014Q3

REPORT INFORMATION
  Report Type: Spontaneous
  Country: US (occurrence: None)
  Receive Date: 20140815
  Receipt Date: 20140815
  Transmission Date: 20150326
  Serious: Yes (Other)
  Sender: FDA-Public Use
  Company Number: ADR-2013-01333

PATIENT
  Age: 57 Year
  Sex: Male

DRUGS (2)
  1. SUFENTANIL [Suspect]
     Active Substance: SUFENTANIL
  2. LIORESAL [Suspect]
     Active Substance: BACLOFEN
     Indication: PAIN

REACTIONS (1)
  - Back pain [None]
